FAERS Safety Report 4919020-3 (Version None)
Quarter: 2006Q1

REPORT INFORMATION
  Report Type: 
  Country: None (occurrence: None)
  Receive Date: 20060215
  Receipt Date: 20060203
  Transmission Date: 20060701
  Serious: Yes (Death)
  Sender: FDA-Public Use
  Company Number: 199907389GDS

PATIENT
  Sex: Male

DRUGS (1)
  1. CIPROFLOXACIN [Suspect]
     Dosage: ORAL
     Route: 048

REACTIONS (5)
  - AUTOIMMUNE DISORDER [None]
  - GENERALISED OEDEMA [None]
  - HYPERSENSITIVITY [None]
  - RASH [None]
  - SKIN REACTION [None]
